FAERS Safety Report 7197092-6 (Version None)
Quarter: 2010Q4

REPORT INFORMATION
  Report Type: 
  Country: None (occurrence: None)
  Receive Date: 20101224
  Receipt Date: 20101220
  Transmission Date: 20110411
  Serious: Yes (Other)
  Sender: FDA-Public Use
  Company Number: FR-BRISTOL-MYERS SQUIBB COMPANY-15452956

PATIENT
  Age: 5 Decade
  Sex: Male

DRUGS (2)
  1. ONGLYZA [Suspect]
     Indication: DIABETES MELLITUS
     Dates: start: 20101101
  2. METFORMIN HCL [Suspect]

REACTIONS (2)
  - APATHY [None]
  - C-REACTIVE PROTEIN INCREASED [None]
